FAERS Safety Report 13345502 (Version 2)
Quarter: 2017Q3

REPORT INFORMATION
  Report Type: Report from Study
  Country: JP (occurrence: JP)
  Receive Date: 20170317
  Receipt Date: 20170714
  Transmission Date: 20171127
  Serious: Yes (Death, Other)
  Sender: FDA-Public Use
  Company Number: JP-UCBSA-2017009659

PATIENT
  Age: 16 Year
  Sex: Male
  Weight: 41 kg

DRUGS (4)
  1. E KEPPRA [Concomitant]
     Active Substance: LEVETIRACETAM
     Indication: PARTIAL SEIZURES WITH SECONDARY GENERALISATION
     Dosage: 1000 MG DAILY IN TWO DIVIDED DOSES
     Route: 048
     Dates: start: 20160102, end: 201601
  2. E KEPPRA [Concomitant]
     Active Substance: LEVETIRACETAM
     Dosage: 2500 MG DAILY IN TWO DIVIDED DOSES
     Route: 048
     Dates: start: 20160130, end: 20160502
  3. LEVETIRACETAM. [Suspect]
     Active Substance: LEVETIRACETAM
     Indication: PARTIAL SEIZURES WITH SECONDARY GENERALISATION
     Dosage: 2500 MG, ONCE DAILY (QD)
     Route: 041
     Dates: start: 20160503, end: 20160520
  4. E KEPPRA [Concomitant]
     Active Substance: LEVETIRACETAM
     Dosage: 2000 MG DAILY IN TWO DIVIDED DOSES
     Route: 048
     Dates: start: 20160119, end: 201601

REACTIONS (2)
  - Epilepsy [Not Recovered/Not Resolved]
  - Death [Fatal]

NARRATIVE: CASE EVENT DATE: 20160520
